FAERS Safety Report 4963481-0 (Version None)
Quarter: 2006Q1

REPORT INFORMATION
  Report Type: 
  Country: None (occurrence: None)
  Receive Date: 20060329
  Receipt Date: 20060111
  Transmission Date: 20060701
  Serious: Yes (Hospitalization, Disabling, Other)
  Sender: FDA-Public Use
  Company Number: 600682

PATIENT
  Age: 91 Year
  Sex: Male

DRUGS (14)
  1. POLYGAM S/D [Suspect]
     Indication: IMMUNODEFICIENCY COMMON VARIABLE
     Dosage: 30 GM; EVERY 4 WK; IV
     Route: 042
     Dates: start: 20020205, end: 20020205
  2. ALBUTEROL [Concomitant]
  3. ASPIRIN [Concomitant]
  4. FLUTICASONE PROPIONATE [Concomitant]
  5. LEVOTHYROXINE SODIUM [Concomitant]
  6. NITRGLYCERIN TRANSDERMAL SYSTEM [Concomitant]
  7. OXYBUTYNIN [Concomitant]
  8. TRIAMCINOLONE [Concomitant]
  9. ATORVASTATIN CALCIUM [Concomitant]
  10. FAMOTIDINE [Concomitant]
  11. FUROSEMIDE [Concomitant]
  12. DOXAZOSIN [Concomitant]
  13. AMLODIPINE [Concomitant]
  14. ZOLPIDEM TARTRATE [Concomitant]

REACTIONS (4)
  - CEREBROVASCULAR ACCIDENT [None]
  - SCOTOMA [None]
  - TRANSIENT ISCHAEMIC ATTACK [None]
  - VERTEBRAL ARTERY OCCLUSION [None]
